FAERS Safety Report 5444533-8 (Version None)
Quarter: 2007Q3

REPORT INFORMATION
  Report Type: 
  Country: None (occurrence: None)
  Receive Date: 20070904
  Receipt Date: 20070904
  Transmission Date: 20080115
  Serious: Yes (Life-Threatening, Hospitalization, Other)
  Sender: FDA-Public Use
  Company Number: None

PATIENT
  Age: 50 Year
  Sex: Female

DRUGS (17)
  1. FENFLURAMINE [Suspect]
     Indication: WEIGHT DECREASED
     Dosage: PO 8-9 MONTHS
     Route: 048
  2. PHENTERMINE [Suspect]
     Indication: WEIGHT DECREASED
     Dosage: PO 8-9 MONTHS
     Route: 048
  3. CLOPIDOGREL [Concomitant]
  4. SUCRALAFATE [Concomitant]
  5. ATROVASTATIN [Concomitant]
  6. DIGOXIN [Concomitant]
  7. BUDESONIDE [Concomitant]
  8. MULTI-VITAMIN [Concomitant]
  9. LORAZEPAM [Concomitant]
  10. CAPTOPRIL [Concomitant]
  11. LORATADINE [Concomitant]
  12. POTASSIUM CHLORIDE [Concomitant]
  13. TIOTROPIUM [Concomitant]
  14. COMBIVENT [Concomitant]
  15. NITROGLYCERIN [Concomitant]
  16. ISOSORBIDE DINITRATE [Concomitant]
  17. CARVEDILOL [Concomitant]

REACTIONS (1)
  - PULMONARY HYPERTENSION [None]
